FAERS Safety Report 20869070 (Version 1)
Quarter: 2022Q2

REPORT INFORMATION
  Report Type: Report from Study
  Country: US (occurrence: US)
  Receive Date: 20220524
  Receipt Date: 20220524
  Transmission Date: 20220721
  Serious: Yes (Other)
  Sender: FDA-Public Use
  Company Number: US-BRISTOL-MYERS SQUIBB COMPANY-2022-027709

PATIENT
  Age: 70 Year
  Sex: Male

DRUGS (1)
  1. REVLIMID [Suspect]
     Active Substance: LENALIDOMIDE
     Indication: Amyloidosis
     Dosage: DAILY FOR 21 DAYS
     Route: 048
     Dates: start: 20190708

REACTIONS (4)
  - Lipoma [Unknown]
  - Abdominal hernia [Unknown]
  - Diarrhoea [Unknown]
  - Intentional device use issue [Unknown]
